FAERS Safety Report 16623646 (Version 2)
Quarter: 2019Q3

REPORT INFORMATION
  Report Type: Spontaneous
  Country: HR (occurrence: HR)
  Receive Date: 20190724
  Receipt Date: 20190731
  Transmission Date: 20191004
  Serious: Yes (Life-Threatening, Hospitalization, Other)
  Sender: FDA-Public Use
  Company Number: HR-SA-2019SA195648

PATIENT
  Age: 55 Year
  Sex: Male

DRUGS (3)
  1. ACETYLSALICYLIC ACID [Concomitant]
     Active Substance: ASPIRIN
     Indication: ANTIPLATELET THERAPY
     Dosage: 100 MG, QD
     Route: 065
  2. HEPARIN [Concomitant]
     Active Substance: HEPARIN SODIUM
     Dosage: 5000 IU
  3. CLOPIDOGREL BISULFATE. [Suspect]
     Active Substance: CLOPIDOGREL BISULFATE
     Indication: ANTIPLATELET THERAPY
     Dosage: 75 MG, QD

REACTIONS (6)
  - Carotid artery occlusion [Recovered/Resolved]
  - Coronary artery occlusion [Recovered/Resolved]
  - Condition aggravated [Recovered/Resolved]
  - Hemiparesis [Recovered/Resolved]
  - Vascular stent thrombosis [Recovered/Resolved]
  - Aphasia [Recovered/Resolved]
